FAERS Safety Report 22366788 (Version 2)
Quarter: 2023Q2

REPORT INFORMATION
  Report Type: Spontaneous
  Country: PT (occurrence: PT)
  Receive Date: 20230525
  Receipt Date: 20230602
  Transmission Date: 20230722
  Serious: Yes (Death)
  Sender: FDA-Public Use
  Company Number: PT-ROCHE-3314972

PATIENT
  Sex: Female
  Weight: 57 kg

DRUGS (10)
  1. RITUXIMAB [Suspect]
     Active Substance: RITUXIMAB
     Indication: Diffuse large B-cell lymphoma
     Dosage: END DATE OF 3RD SYSTEMIC TREATMENT (30/JAN/2023)
     Route: 065
     Dates: start: 20230101, end: 20230130
  2. RITUXIMAB [Suspect]
     Active Substance: RITUXIMAB
     Dosage: 5TH-LINE SYSTEMIC TREATMENT
     Dates: start: 20230216
  3. BENDAMUSTINE [Suspect]
     Active Substance: BENDAMUSTINE
     Indication: Diffuse large B-cell lymphoma
     Dosage: UNK
     Route: 065
  4. BENDAMUSTINE [Suspect]
     Active Substance: BENDAMUSTINE
     Dosage: 5TH-LINE SYSTEMIC TREATMENT
     Dates: start: 20230216
  5. GEMCITABINE [Suspect]
     Active Substance: GEMCITABINE
     Indication: Diffuse large B-cell lymphoma
     Dosage: UNK
     Route: 065
  6. OXALIPLATIN [Suspect]
     Active Substance: OXALIPLATIN
     Indication: Diffuse large B-cell lymphoma
     Dosage: UNK
     Route: 065
  7. CISPLATIN [Suspect]
     Active Substance: CISPLATIN
     Indication: Diffuse large B-cell lymphoma
     Dosage: UNK
     Route: 065
  8. DEXAMETHASONE [Suspect]
     Active Substance: DEXAMETHASONE
     Indication: Diffuse large B-cell lymphoma
     Dosage: UNK
     Route: 065
  9. POLIVY [Suspect]
     Active Substance: POLATUZUMAB VEDOTIN-PIIQ
     Indication: Diffuse large B-cell lymphoma
     Dosage: END DATE OF 3RD SYSTEMIC TREATMENT (30/JAN/2023)
     Route: 065
     Dates: start: 20230101, end: 20230130
  10. POLIVY [Suspect]
     Active Substance: POLATUZUMAB VEDOTIN-PIIQ
     Dosage: 5TH-LINE SYSTEMIC TREATMENT
     Dates: start: 20230216

REACTIONS (2)
  - Death [Fatal]
  - Neoplasm progression [Unknown]
